FAERS Safety Report 6136094-5 (Version None)
Quarter: 2009Q1

REPORT INFORMATION
  Report Type: 
  Country: None (occurrence: None)
  Receive Date: 20090330
  Receipt Date: 20090318
  Transmission Date: 20090719
  Serious: Yes (Other)
  Sender: FDA-Public Use
  Company Number: JP-AMGEN-US326391

PATIENT
  Sex: Female
  Weight: 61 kg

DRUGS (10)
  1. ENBREL [Suspect]
     Indication: RHEUMATOID ARTHRITIS
     Route: 058
     Dates: start: 20070426, end: 20071102
  2. RHEUMATREX [Suspect]
     Indication: RHEUMATOID ARTHRITIS
     Route: 048
     Dates: start: 20060831
  3. INFLIXIMAB [Suspect]
     Indication: DRUG USE FOR UNKNOWN INDICATION
     Dosage: 5 DOSES TOTAL
     Dates: start: 20061005, end: 20070308
  4. FOLIAMIN [Concomitant]
     Indication: PROPHYLAXIS
     Route: 048
     Dates: start: 20060803
  5. RELIFEN [Concomitant]
     Indication: RHEUMATOID ARTHRITIS
     Route: 048
     Dates: start: 20060803, end: 20071207
  6. RELIFEN [Concomitant]
     Route: 048
     Dates: start: 20071207
  7. ISALON [Concomitant]
     Indication: PROPHYLAXIS
     Route: 048
     Dates: start: 20060803
  8. PREDNISOLONE [Concomitant]
     Indication: RHEUMATOID ARTHRITIS
     Route: 048
     Dates: start: 20070906
  9. PREDONINE [Concomitant]
     Route: 048
     Dates: start: 20060803, end: 20070906
  10. ACTONEL [Concomitant]
     Indication: OSTEOPOROSIS
     Route: 048
     Dates: start: 20060803

REACTIONS (1)
  - PNEUMONIA CRYPTOCOCCAL [None]
